FAERS Safety Report 19002266 (Version 1)
Quarter: 2021Q1

REPORT INFORMATION
  Report Type: Spontaneous
  Country: US (occurrence: US)
  Receive Date: 20210312
  Receipt Date: 20210312
  Transmission Date: 20210420
  Serious: No
  Sender: FDA-Public Use
  Company Number: US-CELGENEUS-USA-20210301668

PATIENT
  Sex: Male

DRUGS (1)
  1. REVLIMID [Suspect]
     Active Substance: LENALIDOMIDE
     Indication: PLASMA CELL MYELOMA
     Dosage: 10 MILLIGRAM
     Route: 048
     Dates: start: 202101

REACTIONS (6)
  - Peripheral swelling [Unknown]
  - Dizziness [Unknown]
  - Insomnia [Unknown]
  - Vomiting [Unknown]
  - Weight decreased [Unknown]
  - Diplopia [Unknown]

NARRATIVE: CASE EVENT DATE: 2021
